FAERS Safety Report 8004215-5 (Version None)
Quarter: 2011Q4

REPORT INFORMATION
  Report Type: 
  Country: None (occurrence: None)
  Receive Date: 20111223
  Receipt Date: 20111219
  Transmission Date: 20120403
  Serious: No
  Sender: FDA-Public Use
  Company Number: US-BIOGENIDEC-2011BI025143

PATIENT
  Sex: Female

DRUGS (3)
  1. BACLOFEN [Concomitant]
  2. VITAMIN TAB [Concomitant]
  3. TYSABRI [Suspect]
     Indication: MULTIPLE SCLEROSIS
     Route: 042
     Dates: start: 20080429, end: 20110727

REACTIONS (7)
  - TEMPERATURE INTOLERANCE [None]
  - MEMORY IMPAIRMENT [None]
  - EYE PAIN [None]
  - SENSORY DISTURBANCE [None]
  - MULTIPLE SCLEROSIS RELAPSE [None]
  - DIZZINESS [None]
  - LACRIMATION INCREASED [None]
